FAERS Safety Report 5481294-0 (Version None)
Quarter: 2008Q1

REPORT INFORMATION
  Report Type: 
  Country: None (occurrence: None)
  Receive Date: 20071010
  Receipt Date: 20070927
  Transmission Date: 20080703
  Serious: Yes (Hospitalization)
  Sender: FDA-Public Use
  Company Number: FR-ROCHE-514929

PATIENT
  Age: 63 Year
  Sex: Male

DRUGS (2)
  1. FLUMAZENIL [Suspect]
     Indication: OFF LABEL USE
     Dosage: FORM REPORTED AS INJECTABLE SOLUTION.
     Route: 065
  2. FLUMAZENIL [Suspect]
     Route: 065

REACTIONS (1)
  - COMA [None]
